FAERS Safety Report 5110895-4 (Version None)
Quarter: 2006Q3

REPORT INFORMATION
  Report Type: 
  Country: None (occurrence: None)
  Receive Date: 20060919
  Receipt Date: 20060906
  Transmission Date: 20061208
  Serious: Yes (Hospitalization)
  Sender: FDA-Public Use
  Company Number: FR-2005-019764

PATIENT
  Age: 53 Year
  Sex: Male
  Weight: 66 kg

DRUGS (5)
  1. BETAFERON (INTERFERON BETA - 1B) INJECTION, 250UG [Suspect]
     Indication: MULTIPLE SCLEROSIS
     Dosage: 1 DF, 3X/WEEK, SUBCUTANEOUS
     Route: 058
  2. KETOPROFEN [Concomitant]
  3. TERCIAN (CYAMEMAZINE) [Concomitant]
  4. UTEPLEX (URIDINE TRIPHOSPHATE SODIUM) [Concomitant]
  5. PROZAC [Concomitant]

REACTIONS (3)
  - ABNORMAL BEHAVIOUR [None]
  - AGGRESSION [None]
  - AGITATION [None]
